FAERS Safety Report 17277946 (Version 1)
Quarter: 2020Q1

REPORT INFORMATION
  Report Type: Spontaneous
  Country: IT (occurrence: IT)
  Receive Date: 20200116
  Receipt Date: 20200116
  Transmission Date: 20200409
  Serious: Yes (Other)
  Sender: FDA-Public Use
  Company Number: IT-PFIZER INC-2020015444

PATIENT
  Age: 20 Year
  Sex: Male

DRUGS (1)
  1. XANAX [Suspect]
     Active Substance: ALPRAZOLAM
     Dosage: UNK
     Route: 048
     Dates: start: 20191117, end: 20191117

REACTIONS (2)
  - Drug abuse [Recovering/Resolving]
  - Psychomotor hyperactivity [Recovering/Resolving]

NARRATIVE: CASE EVENT DATE: 20191117
